FAERS Safety Report 9423474 (Version 2)
Quarter: 2013Q3

REPORT INFORMATION
  Report Type: Spontaneous
  Country: US (occurrence: US)
  Receive Date: 20130726
  Receipt Date: 20130812
  Transmission Date: 20140515
  Serious: Yes (Other)
  Sender: FDA-Public Use
  Company Number: US-UPSHER-SMITH LABORATORIES, INC.-13002452

PATIENT
  Age: 58 Year
  Sex: Female

DRUGS (3)
  1. JANTOVEN [Suspect]
     Indication: ARTERIAL THROMBOSIS
     Dosage: 7.5 MG, QD
     Route: 048
     Dates: start: 20130620
  2. FENOFIBRATE [Suspect]
     Indication: PRODUCT USED FOR UNKNOWN INDICATION
     Dosage: UNK, QD
     Route: 048
     Dates: start: 20130622
  3. PRAVASTATIN [Concomitant]
     Dosage: UNK
     Dates: start: 20130622

REACTIONS (3)
  - International normalised ratio increased [Recovered/Resolved]
  - Contusion [Recovering/Resolving]
  - Drug interaction [Recovered/Resolved]
